FAERS Safety Report 6677911-X (Version None)
Quarter: 2010Q2

REPORT INFORMATION
  Report Type: 
  Country: None (occurrence: None)
  Receive Date: 20100412
  Receipt Date: 20100401
  Transmission Date: 20101027
  Serious: Yes (Other)
  Sender: FDA-Public Use
  Company Number: US-JNJCH-2010008205

PATIENT
  Age: 73 Year
  Sex: Female
  Weight: 68 kg

DRUGS (4)
  1. LISTERINE WHITENING VIBRANT WHITE PRE-BRUSH RINSE [Suspect]
     Indication: DENTAL CARE
     Dosage: TEXT:ONE CAPFUL 2X DAILY
     Route: 048
  2. CLARITIN [Concomitant]
     Indication: HYPERSENSITIVITY
     Dosage: TEXT:1X DAILY
     Route: 065
  3. ZOCOR [Concomitant]
     Indication: BLOOD CHOLESTEROL
     Dosage: TEXT:1X DAILY
     Route: 065
  4. EVISTA [Concomitant]
     Indication: HORMONE REPLACEMENT THERAPY
     Dosage: TEXT:1X DAILY
     Route: 065

REACTIONS (2)
  - AGEUSIA [None]
  - APPLICATION SITE VESICLES [None]
